FAERS Safety Report 8145254-3 (Version None)
Quarter: 2012Q1

REPORT INFORMATION
  Report Type: 
  Country: None (occurrence: None)
  Receive Date: 20120217
  Receipt Date: 20120214
  Transmission Date: 20120608
  Serious: Yes (Life-Threatening, Hospitalization)
  Sender: FDA-Public Use
  Company Number: US-BAYER-2011-093564

PATIENT
  Age: 34 Year
  Sex: Female

DRUGS (10)
  1. PREMARIN [Concomitant]
     Dosage: 0.3 MG, DAILY
     Dates: start: 20091101
  2. IBUPROFEN [Concomitant]
     Dosage: 800 MG, DAILY
     Dates: start: 20091201
  3. YAZ [Suspect]
  4. SUDAFED 12 HOUR [Concomitant]
     Dosage: ONE TABLET, 2-3 TIMES DAILY
     Dates: start: 20091201
  5. ZYRTEC [Concomitant]
     Dosage: ONE TABLET DAILY
     Dates: start: 20091201
  6. DROSPIRENONE AND ETHINYL ESTRADIOL [Suspect]
  7. YASMIN [Suspect]
  8. FERROUS SULFATE TAB [Concomitant]
     Dosage: 325 MG, UNK
     Dates: start: 20091009
  9. PONSTEL [Concomitant]
     Dosage: 250 MG, UNK
     Route: 048
     Dates: start: 20090910
  10. VITAMIN D [Concomitant]
     Dosage: 50,000 UNITS
     Dates: start: 20091023

REACTIONS (7)
  - INJURY [None]
  - ANXIETY [None]
  - THROMBOSIS [None]
  - GENERAL PHYSICAL HEALTH DETERIORATION [None]
  - PAIN [None]
  - ANHEDONIA [None]
  - PULMONARY EMBOLISM [None]
